FAERS Safety Report 24542800 (Version 2)
Quarter: 2025Q1

REPORT INFORMATION
  Report Type: Spontaneous
  Country: US (occurrence: US)
  Receive Date: 20241024
  Receipt Date: 20250201
  Transmission Date: 20250409
  Serious: No
  Sender: GLENMARK
  Company Number: US-GLENMARK PHARMACEUTICALS-2024GMK094698

PATIENT

DRUGS (1)
  1. RYALTRIS [Suspect]
     Active Substance: MOMETASONE FUROATE MONOHYDRATE\OLOPATADINE HYDROCHLORIDE
     Indication: Seasonal allergy
     Dosage: 2 DOSAGE FORM, QD (TWO SPRAYS IN EACH NOSTRIL IN THE MORNING (ONCE DAILY)
     Route: 045
     Dates: start: 2024

REACTIONS (3)
  - Product use issue [Unknown]
  - Poor quality product administered [Unknown]
  - Product odour abnormal [Unknown]
